FAERS Safety Report 5632306-2 (Version None)
Quarter: 2008Q1

REPORT INFORMATION
  Report Type: 
  Country: None (occurrence: None)
  Receive Date: 20080131
  Receipt Date: 20071009
  Transmission Date: 20080703
  Serious: No
  Sender: FDA-Public Use
  Company Number: 163-21880-07100509

PATIENT
  Age: 70 Year
  Sex: Female

DRUGS (6)
  1. REVLIMID [Suspect]
     Indication: MULTIPLE MYELOMA
     Dosage: 5 MG, 1 IN 1 D, ORAL
     Route: 048
     Dates: start: 20070911
  2. BACTRIM [Concomitant]
  3. COUGH SYRUP (COUGH SYRUP) (SYRUP) [Concomitant]
  4. SINGULAIR [Concomitant]
  5. ALBUTEROL [Concomitant]
  6. FLOVENT [Concomitant]

REACTIONS (5)
  - COUGH [None]
  - PYREXIA [None]
  - RHINORRHOEA [None]
  - SNEEZING [None]
  - UPPER RESPIRATORY TRACT INFECTION [None]
